FAERS Safety Report 7329066-6 (Version None)
Quarter: 2011Q1

REPORT INFORMATION
  Report Type: 
  Country: None (occurrence: None)
  Receive Date: 20110303
  Receipt Date: 20110223
  Transmission Date: 20110831
  Serious: Yes (Hospitalization, Other)
  Sender: FDA-Public Use
  Company Number: US-US-EMD SERONO, INC.-7017465

PATIENT
  Sex: Female

DRUGS (3)
  1. REBIF [Suspect]
     Route: 058
  2. REBIF [Suspect]
     Indication: MULTIPLE SCLEROSIS
     Route: 058
     Dates: start: 20090929
  3. REBIF [Suspect]
     Route: 058
     Dates: start: 20110221

REACTIONS (6)
  - HEPATIC ENZYME INCREASED [None]
  - WEIGHT INCREASED [None]
  - RHINORRHOEA [None]
  - MULTIPLE SCLEROSIS RELAPSE [None]
  - TYPE 2 DIABETES MELLITUS [None]
  - ANKLE FRACTURE [None]
